FAERS Safety Report 8875842 (Version 3)
Quarter: 2012Q4

REPORT INFORMATION
  Report Type: 
  Country: JP (occurrence: JP)
  Receive Date: 20121030
  Receipt Date: 20121109
  Transmission Date: 20130627
  Serious: Yes (Hospitalization)
  Sender: FDA-Public Use
  Company Number: JP-GLAXOSMITHKLINE-B0840609A

PATIENT
  Age: 55 Year
  Sex: Male

DRUGS (4)
  1. LAMICTAL [Suspect]
     Indication: BIPOLAR DISORDER
     Route: 048
  2. ARIPIPRAZOLE [Suspect]
     Route: 048
  3. LIMAS [Concomitant]
     Route: 048
  4. JZOLOFT [Concomitant]
     Route: 048

REACTIONS (2)
  - Neuroleptic malignant syndrome [Unknown]
  - Rhabdomyolysis [Unknown]
